FAERS Safety Report 8113282-X (Version None)
Quarter: 2012Q1

REPORT INFORMATION
  Report Type: 
  Country: None (occurrence: None)
  Receive Date: 20120203
  Receipt Date: 20120125
  Transmission Date: 20120608
  Serious: Yes (Other)
  Sender: FDA-Public Use
  Company Number: US-PERRIGO-12US000679

PATIENT
  Sex: Female
  Weight: 65.76 kg

DRUGS (1)
  1. POLYETHYLENE GLYCOL [Suspect]
     Indication: CONSTIPATION
     Dosage: 17 G, SINGLE
     Route: 048
     Dates: start: 20111211, end: 20111211

REACTIONS (3)
  - SWELLING [None]
  - HYPERSENSITIVITY [None]
  - URTICARIA [None]
